FAERS Safety Report 17967492 (Version 1)
Quarter: 2020Q2

REPORT INFORMATION
  Report Type: Spontaneous
  Country: US (occurrence: US)
  Receive Date: 20200630
  Receipt Date: 20200630
  Transmission Date: 20200714
  Serious: Yes (Hospitalization)
  Sender: FDA-Public Use
  Company Number: None

PATIENT
  Age: 56 Year
  Sex: Female

DRUGS (15)
  1. GABAPENTIN. [Concomitant]
     Active Substance: GABAPENTIN
  2. NAPROXEN. [Concomitant]
     Active Substance: NAPROXEN
  3. MONTELUKAST [Concomitant]
     Active Substance: MONTELUKAST SODIUM
  4. IBRANCE [Suspect]
     Active Substance: PALBOCICLIB
     Indication: BREAST CANCER FEMALE
     Dosage: 1 TAB QD PO FOR 21 D ON 7 OFF
     Route: 048
     Dates: start: 20200122
  5. MORPHINE SUL [Concomitant]
     Active Substance: MORPHINE SULFATE
  6. TIZANIDINE. [Concomitant]
     Active Substance: TIZANIDINE
  7. ANASTROZOLE. [Concomitant]
     Active Substance: ANASTROZOLE
  8. VENLAFAXINE [Concomitant]
     Active Substance: VENLAFAXINE HYDROCHLORIDE
  9. ALBUTEROL NEB [Concomitant]
     Active Substance: ALBUTEROL
  10. TAMOIXIFEN [Concomitant]
  11. ALBUTEROL AER [Concomitant]
  12. BUDESONIDE. [Concomitant]
     Active Substance: BUDESONIDE
  13. DEXAMETHASON [Concomitant]
     Active Substance: DEXAMETHASONE
  14. LIDOCAINE. [Concomitant]
     Active Substance: LIDOCAINE
  15. PROCHLORPER [Concomitant]

REACTIONS (2)
  - Therapy interrupted [None]
  - Surgery [None]

NARRATIVE: CASE EVENT DATE: 20200616
